FAERS Safety Report 17356297 (Version 2)
Quarter: 2020Q1

REPORT INFORMATION
  Report Type: Spontaneous
  Country: DK (occurrence: DK)
  Receive Date: 20200131
  Receipt Date: 20200305
  Transmission Date: 20200409
  Serious: Yes (Other)
  Sender: FDA-Public Use
  Company Number: DK-MYLANLABS-2020M1011896

PATIENT
  Age: 36 Year
  Sex: Male
  Weight: 95 kg

DRUGS (10)
  1. ZELDOX [Suspect]
     Active Substance: ZIPRASIDONE
     Indication: MENTAL DISORDER
     Dosage: 20 MILLIGRAM
     Route: 048
  2. ZIPRASIDON [Suspect]
     Active Substance: ZIPRASIDONE HYDROCHLORIDE
     Indication: MENTAL DISORDER
     Dosage: 20 MILLIGRAM
     Route: 048
  3. DELEPSINE [Suspect]
     Active Substance: VALPROATE SODIUM
     Indication: MANIA
     Dosage: 500 MILLIGRAM
     Route: 065
     Dates: start: 20150202, end: 20170614
  4. DELEPSINE [Suspect]
     Active Substance: VALPROATE SODIUM
     Indication: MOOD SWINGS
     Dosage: UNK, BID (2,5 ML MORGEN OG 4 ML AFTEN)
     Route: 048
     Dates: start: 20150717
  5. LEPONEX [Suspect]
     Active Substance: CLOZAPINE
     Indication: SCHIZOPHRENIA
     Dosage: UNK
     Route: 048
  6. CLOZAPIN HEXAL [Suspect]
     Active Substance: CLOZAPINE
     Indication: PSYCHOTIC DISORDER
     Dosage: 350 MILLIGRAM, (150-350 MG)
     Route: 048
  7. CLOZAPIN HEXAL [Suspect]
     Active Substance: CLOZAPINE
     Indication: SCHIZOPHRENIA
     Dosage: 250 MILLIGRAM (1DGL)
     Route: 048
     Dates: start: 20170215, end: 20170914
  8. CLOZAPIN HEXAL [Suspect]
     Active Substance: CLOZAPINE
     Dosage: 200 MILLIGRAM (1 DGL)
     Route: 048
     Dates: start: 20170914
  9. SEROQUEL [Suspect]
     Active Substance: QUETIAPINE FUMARATE
     Indication: MENTAL DISORDER
     Dosage: 500 MILLIGRAM
     Route: 048
     Dates: start: 20050310
  10. RISPERDAL [Suspect]
     Active Substance: RISPERIDONE
     Indication: SCHIZOPHRENIA
     Dosage: UNK
     Route: 065
     Dates: start: 2003, end: 2006

REACTIONS (8)
  - Hormone level abnormal [Not Recovered/Not Resolved]
  - Feminisation acquired [Not Recovered/Not Resolved]
  - Hyperprolactinaemia [Not Recovered/Not Resolved]
  - Testicular atrophy [Not Recovered/Not Resolved]
  - Erectile dysfunction [Not Recovered/Not Resolved]
  - Sperm concentration decreased [Not Recovered/Not Resolved]
  - Hypogonadism male [Not Recovered/Not Resolved]
  - Infertility [Not Recovered/Not Resolved]

NARRATIVE: CASE EVENT DATE: 20160717
